FAERS Safety Report 24324049 (Version 1)
Quarter: 2024Q3

REPORT INFORMATION
  Report Type: Spontaneous
  Country: US (occurrence: None)
  Receive Date: 20240916
  Receipt Date: 20240916
  Transmission Date: 20241016
  Serious: No
  Sender: Public
  Company Number: None

PATIENT
  Age: 71 Year
  Sex: Male
  Weight: 95.25 kg

DRUGS (2)
  1. OTEZLA [Suspect]
     Active Substance: APREMILAST
     Indication: Psoriasis
     Dosage: TAKE 1 TABLET BY MOUTH TWICE DAILY AS DIRECTED.    ?
     Route: 048
  2. VTAMA [Suspect]
     Active Substance: TAPINAROF
     Indication: Psoriasis
     Dosage: APPLY A THIN LAYER TO AFFECTED AREA (S)  ONCE DAILY AS NEEDED
     Route: 061
     Dates: start: 202311

REACTIONS (1)
  - Arthritis infective [None]
